FAERS Safety Report 5564675-6 (Version None)
Quarter: 2007Q4

REPORT INFORMATION
  Report Type: 
  Country: None (occurrence: None)
  Receive Date: 20071212
  Receipt Date: 20071129
  Transmission Date: 20080405
  Serious: Yes (Other)
  Sender: FDA-Public Use
  Company Number: 2007BI025434

PATIENT
  Age: 38 Year
  Sex: Female

DRUGS (2)
  1. AVONEX [Suspect]
     Indication: RELAPSING-REMITTING MULTIPLE SCLEROSIS
     Dosage: 30 UG;QW; IM
     Route: 030
     Dates: start: 20050301, end: 20051001
  2. AVONEX [Suspect]
     Indication: RELAPSING-REMITTING MULTIPLE SCLEROSIS
     Dosage: 30 UG;QW; IM
     Route: 030
     Dates: start: 20051201

REACTIONS (2)
  - GINGIVAL ATROPHY [None]
  - TOOTH EXTRACTION [None]
